FAERS Safety Report 6675102-X (Version None)
Quarter: 2010Q2

REPORT INFORMATION
  Report Type: 
  Country: None (occurrence: None)
  Receive Date: 20100409
  Receipt Date: 20100329
  Transmission Date: 20101027
  Serious: Yes (Other)
  Sender: FDA-Public Use
  Company Number: FR-GENZYME-FABR-1001210

PATIENT

DRUGS (2)
  1. FABRAZYME [Suspect]
     Indication: FABRY'S DISEASE
     Dosage: 50 MG, Q2W
     Route: 042
     Dates: start: 20060307, end: 20091019
  2. FABRAZYME [Suspect]
     Dosage: 15 MG, Q2W
     Route: 042
     Dates: start: 20091019

REACTIONS (6)
  - DEAFNESS NEUROSENSORY [None]
  - DIZZINESS [None]
  - HYPOACUSIS [None]
  - INNER EAR DISORDER [None]
  - UVEITIS [None]
  - VERTIGO [None]
